FAERS Safety Report 5798096-8 (Version None)
Quarter: 2008Q3

REPORT INFORMATION
  Report Type: 
  Country: None (occurrence: None)
  Receive Date: 20080702
  Receipt Date: 20080630
  Transmission Date: 20090109
  Serious: Yes (Hospitalization, Disabling, Other)
  Sender: FDA-Public Use
  Company Number: US-ABBOTT-08P-163-0459788-00

PATIENT
  Sex: Male
  Weight: 104.42 kg

DRUGS (14)
  1. DEPAKOTE [Suspect]
     Indication: TRAUMATIC BRAIN INJURY
     Route: 048
  2. DEPAKOTE [Suspect]
     Route: 048
     Dates: start: 19930101
  3. PENTAZOCINE LACTATE [Interacting]
     Indication: DRUG USE FOR UNKNOWN INDICATION
  4. PHENYTOIN [Concomitant]
     Indication: CONVULSION
     Route: 048
  5. ATENOLOL [Concomitant]
     Indication: BLOOD PRESSURE
     Route: 048
  6. BENZTROPINE MESYLATE [Concomitant]
     Indication: DRUG USE FOR UNKNOWN INDICATION
     Route: 048
  7. FLUOXETINE [Concomitant]
     Indication: DRUG USE FOR UNKNOWN INDICATION
     Route: 048
  8. RISPERIDONE [Concomitant]
     Indication: DRUG USE FOR UNKNOWN INDICATION
     Route: 048
  9. MIRTAZAPINE [Concomitant]
     Indication: DRUG USE FOR UNKNOWN INDICATION
     Route: 048
  10. VERAPAMIL [Concomitant]
     Indication: DRUG USE FOR UNKNOWN INDICATION
     Route: 048
  11. TOPIRAMATE [Concomitant]
     Indication: DRUG USE FOR UNKNOWN INDICATION
     Route: 048
  12. SIMVASTATIN [Concomitant]
     Indication: DRUG USE FOR UNKNOWN INDICATION
     Route: 048
  13. TRAMADOL HCL [Concomitant]
     Indication: DRUG USE FOR UNKNOWN INDICATION
     Route: 048
  14. RIZATRIPTAN BENZOATE [Concomitant]
     Indication: DRUG USE FOR UNKNOWN INDICATION
     Route: 048

REACTIONS (11)
  - ADVERSE DRUG REACTION [None]
  - AMMONIA INCREASED [None]
  - ANAEMIA [None]
  - ANTICONVULSANT DRUG LEVEL INCREASED [None]
  - CONVULSION [None]
  - DEPRESSED LEVEL OF CONSCIOUSNESS [None]
  - DRUG INTERACTION [None]
  - DRUG LEVEL INCREASED [None]
  - FALL [None]
  - MEMORY IMPAIRMENT [None]
  - VISION BLURRED [None]
